FAERS Safety Report 9200708 (Version 5)
Quarter: 2014Q2

REPORT INFORMATION
  Report Type: Report from Study
  Country: JP (occurrence: JP)
  Receive Date: 20130401
  Receipt Date: 20140605
  Transmission Date: 20141212
  Serious: Yes (Death)
  Sender: FDA-Public Use
  Company Number: JP-PFIZER INC-2013082216

PATIENT
  Age: 59 Year
  Sex: Female
  Weight: 41.2 kg

DRUGS (4)
  1. CRIZOTINIB [Suspect]
     Indication: NON-SMALL CELL LUNG CANCER
     Dosage: 250 MG, 2X/DAY
     Route: 048
     Dates: start: 20130301, end: 20130301
  2. VITAMEDIN CAPSULE [Concomitant]
     Dosage: 1 DF, 3X/DAY
     Route: 048
     Dates: end: 20130301
  3. BFLUID [Concomitant]
     Dosage: 1000 ML, 1X/DAY
     Route: 048
     Dates: end: 20130301
  4. INTRALIPOS [Concomitant]
     Dosage: 100 ML, 1X/DAY
     Route: 048
     Dates: end: 20130301

REACTIONS (5)
  - Disseminated intravascular coagulation [Fatal]
  - Circulatory collapse [Fatal]
  - Metabolic acidosis [Fatal]
  - Disease progression [Fatal]
  - Non-small cell lung cancer [Fatal]
